FAERS Safety Report 6292360-4 (Version None)
Quarter: 2009Q3

REPORT INFORMATION
  Report Type: 
  Country: None (occurrence: None)
  Receive Date: 20090731
  Receipt Date: 20090724
  Transmission Date: 20100115
  Serious: Yes (Life-Threatening)
  Sender: FDA-Public Use
  Company Number: US-BAYER-200927996NA

PATIENT
  Age: 68 Year
  Sex: Female

DRUGS (2)
  1. SORAFENIB [Suspect]
     Indication: ENDOMETRIAL CANCER
     Dosage: UNIT DOSE: 200 MG
     Route: 048
     Dates: start: 20090102, end: 20090714
  2. CAPECITABINE [Suspect]
     Indication: ENDOMETRIAL CANCER
     Dates: start: 20090102, end: 20090714

REACTIONS (1)
  - TRANSIENT ISCHAEMIC ATTACK [None]
